FAERS Safety Report 23156900 (Version 1)
Quarter: 2023Q4

REPORT INFORMATION
  Report Type: Spontaneous
  Country: US (occurrence: US)
  Receive Date: 20231108
  Receipt Date: 20231108
  Transmission Date: 20240110
  Serious: Yes (Hospitalization)
  Sender: FDA-Public Use
  Company Number: US-HETERO-HET2023US03123

PATIENT
  Age: 60 Year
  Sex: Male

DRUGS (10)
  1. LITHIUM [Suspect]
     Active Substance: LITHIUM
     Indication: Bipolar I disorder
     Dosage: 600 MILLIGRAM, Q.H.S.
     Route: 065
  2. LITHIUM [Suspect]
     Active Substance: LITHIUM
     Dosage: 900 MILLIGRAM, Q.H.S.
     Route: 065
  3. LITHIUM [Suspect]
     Active Substance: LITHIUM
     Dosage: 600 MILLIGRAM, Q.H.S.
     Route: 065
  4. ARIPIPRAZOLE [Suspect]
     Active Substance: ARIPIPRAZOLE
     Indication: Bipolar I disorder
     Dosage: 10 MILLIGRAM, Q.H.S.
     Route: 048
  5. ARIPIPRAZOLE [Suspect]
     Active Substance: ARIPIPRAZOLE
     Dosage: INCREASED TO 20 MILLIGRAM
     Route: 048
  6. ARIPIPRAZOLE [Suspect]
     Active Substance: ARIPIPRAZOLE
     Dosage: INCREASED TO 30 MILLIGRAM
     Route: 048
  7. TRAZODONE [Concomitant]
     Active Substance: TRAZODONE HYDROCHLORIDE
     Indication: Bipolar I disorder
     Dosage: UNK
     Route: 065
  8. SERTRALINE [Concomitant]
     Active Substance: SERTRALINE HYDROCHLORIDE
     Indication: Bipolar I disorder
     Dosage: UNK
     Route: 065
  9. SERTRALINE [Concomitant]
     Active Substance: SERTRALINE HYDROCHLORIDE
     Dosage: INCREASED INCREMENTALLY
     Route: 065
  10. LORAZEPAM [Concomitant]
     Active Substance: LORAZEPAM
     Indication: Bipolar I disorder
     Dosage: UNK
     Route: 065

REACTIONS (2)
  - Neuroleptic malignant syndrome [Recovered/Resolved]
  - Toxicity to various agents [Recovered/Resolved]
